FAERS Safety Report 4342183-8 (Version None)
Quarter: 2004Q1

REPORT INFORMATION
  Report Type: 
  Country: None (occurrence: None)
  Receive Date: 20040329
  Receipt Date: 20040211
  Transmission Date: 20041129
  Serious: No
  Sender: FDA-Public Use
  Company Number: USA031254017

PATIENT
  Age: 30 Year
  Sex: Male
  Weight: 78 kg

DRUGS (2)
  1. STRATTERA [Suspect]
     Indication: ATTENTION DEFICIT/HYPERACTIVITY DISORDER
     Dosage: 25  MG/ TWICE DAY
  2. PAXIL [Concomitant]

REACTIONS (3)
  - EATING DISORDER [None]
  - MALE ORGASMIC DISORDER [None]
  - THROAT IRRITATION [None]
